FAERS Safety Report 22141515 (Version 4)
Quarter: 2024Q1

REPORT INFORMATION
  Report Type: Spontaneous
  Country: US (occurrence: IE)
  Receive Date: 20230327
  Receipt Date: 20240125
  Transmission Date: 20240409
  Serious: Yes (Death)
  Sender: FDA-Public Use
  Company Number: US-PFIZER INC-202300130627

PATIENT
  Age: 86 Year
  Sex: Male
  Weight: 65.77 kg

DRUGS (3)
  1. VYNDAMAX [Suspect]
     Active Substance: TAFAMIDIS
     Indication: Amyloidosis
     Dosage: 61 MG, 1X/DAY
     Dates: start: 202302
  2. VYNDAMAX [Suspect]
     Active Substance: TAFAMIDIS
     Dosage: 10 MG, 2X/DAY
  3. ELIQUIS [Concomitant]
     Active Substance: APIXABAN
     Dosage: UNK

REACTIONS (6)
  - Death [Fatal]
  - Dyspnoea [Not Recovered/Not Resolved]
  - Gait disturbance [Unknown]
  - Eye disorder [Unknown]
  - Memory impairment [Unknown]
  - Incorrect dose administered [Unknown]
